FAERS Safety Report 23371579 (Version 1)
Quarter: 2024Q1

REPORT INFORMATION
  Report Type: Spontaneous
  Country: US (occurrence: None)
  Receive Date: 20240105
  Receipt Date: 20240105
  Transmission Date: 20240409
  Serious: Yes (Hospitalization)
  Sender: FDA-Public Use
  Company Number: None

PATIENT
  Sex: Male

DRUGS (1)
  1. ICATIBANT ACETATE [Suspect]
     Active Substance: ICATIBANT ACETATE
     Indication: Immune system disorder
     Dosage: 30MG AS NEEEDE SUBCUTANEOUSLY?
     Route: 058
     Dates: start: 202204

REACTIONS (4)
  - Immune system disorder [None]
  - Condition aggravated [None]
  - Cardiac operation [None]
  - Weight decreased [None]

NARRATIVE: CASE EVENT DATE: 20231205
